FAERS Safety Report 5858307-7 (Version None)
Quarter: 2008Q3

REPORT INFORMATION
  Report Type: 
  Country: None (occurrence: None)
  Receive Date: 20080826
  Receipt Date: 20080813
  Transmission Date: 20090109
  Serious: Yes (Hospitalization)
  Sender: FDA-Public Use
  Company Number: B0532702A

PATIENT
  Age: 61 Year
  Sex: Female

DRUGS (4)
  1. AMOXICILLIN [Suspect]
     Indication: PHARYNGOTONSILLITIS
     Dosage: 1G PER DAY
     Route: 065
  2. ENALAPRIL MALEATE [Concomitant]
     Dosage: 5MG PER DAY
     Route: 065
  3. CHLORPROPAMIDE [Concomitant]
     Dosage: 500MG PER DAY
     Route: 065
  4. METFORMIN HCL [Concomitant]
     Dosage: 1700MG PER DAY
     Route: 065

REACTIONS (14)
  - CHOLANGITIS [None]
  - CHOLESTASIS [None]
  - CHOLURIA [None]
  - EOSINOPHILIA [None]
  - ERYTHEMA MULTIFORME [None]
  - HEPATIC ENZYME INCREASED [None]
  - HEPATITIS [None]
  - HYPERCHOLESTEROLAEMIA [None]
  - HYPOALBUMINAEMIA [None]
  - JAUNDICE [None]
  - PRURIGO [None]
  - PYREXIA [None]
  - RASH PAPULAR [None]
  - SKIN LESION [None]
